FAERS Safety Report 4814576-3 (Version None)
Quarter: 2005Q4

REPORT INFORMATION
  Report Type: 
  Country: None (occurrence: None)
  Receive Date: 20051028
  Receipt Date: 20050908
  Transmission Date: 20060501
  Serious: Yes (Other)
  Sender: FDA-Public Use
  Company Number: US-GLAXOSMITHKLINE-A0573493A

PATIENT
  Age: 84 Year
  Sex: Female
  Weight: 47.7 kg

DRUGS (3)
  1. ADVAIR DISKUS 100/50 [Suspect]
     Dosage: 1PUFF TWICE PER DAY
     Route: 055
     Dates: start: 20050722, end: 20050822
  2. NABUMETONE [Concomitant]
     Indication: NECK PAIN
     Dosage: 1000MG PER DAY
     Route: 048
     Dates: start: 20050722, end: 20050922
  3. DETROL LA [Concomitant]
     Indication: STRESS INCONTINENCE
     Dosage: 4MG PER DAY
     Route: 048
     Dates: start: 20050722, end: 20050822

REACTIONS (4)
  - MACULAR DEGENERATION [None]
  - VISION BLURRED [None]
  - VISUAL ACUITY TESTS ABNORMAL [None]
  - VISUAL FIELD DEFECT [None]
